FAERS Safety Report 21812756 (Version 1)
Quarter: 2023Q1

REPORT INFORMATION
  Report Type: Report from Study
  Country: US (occurrence: US)
  Receive Date: 20230103
  Receipt Date: 20230103
  Transmission Date: 20230418
  Serious: Yes (Other)
  Sender: FDA-Public Use
  Company Number: US-ABBVIE-4255760

PATIENT
  Sex: Female

DRUGS (2)
  1. ORIAHNN [Suspect]
     Active Substance: ELAGOLIX SODIUM\ESTRADIOL\NORETHINDRONE
     Indication: Product used for unknown indication
     Dosage: 1-0.5MG?300-1-0 5MG, 1 MORNING CAPSULE IN THE AM AND 1 EVENING CAPSULE IN THE PM
     Route: 048
  2. ORIAHNN [Suspect]
     Active Substance: ELAGOLIX SODIUM\ESTRADIOL\NORETHINDRONE
     Indication: Product used for unknown indication
     Dosage: 1-0.5MG?300-1-0 5MG, 1 MORNING CAPSULE IN THE AM AND 1 EVENING CAPSULE IN THE PM
     Route: 048

REACTIONS (3)
  - Suicidal ideation [Unknown]
  - Alopecia [Unknown]
  - Weight increased [Unknown]
